FAERS Safety Report 9358490 (Version 1)
Quarter: 2013Q2

REPORT INFORMATION
  Report Type: Spontaneous
  Country: US (occurrence: None)
  Receive Date: 20130619
  Receipt Date: 20130619
  Transmission Date: 20140414
  Serious: Yes (Hospitalization, Disabling)
  Sender: FDA-Public Use
  Company Number: None

PATIENT
  Age: 65 Year
  Sex: Female
  Weight: 76.4 kg

DRUGS (2)
  1. BONIVA 150 MG [Suspect]
     Indication: OSTEOPOROSIS
     Dosage: 1 TABLET 1X PER MONTH
     Route: 048
     Dates: start: 2000, end: 2012
  2. FOSAMAX [Suspect]

REACTIONS (6)
  - Femur fracture [None]
  - Activities of daily living impaired [None]
  - Mobility decreased [None]
  - Foot fracture [None]
  - Rib fracture [None]
  - Fall [None]
